FAERS Safety Report 13301767 (Version 6)
Quarter: 2017Q3

REPORT INFORMATION
  Report Type: Report from Study
  Country: BR (occurrence: BR)
  Receive Date: 20170307
  Receipt Date: 20170906
  Transmission Date: 20171127
  Serious: Yes (Hospitalization, Other)
  Sender: FDA-Public Use
  Company Number: PHHY2017BR034005

PATIENT
  Sex: Male
  Weight: 63 kg

DRUGS (3)
  1. EXELON PATCH [Suspect]
     Active Substance: RIVASTIGMINE
     Dosage: 9.5 MG, PATCH 10 (CM2), QD
     Route: 062
  2. EXELON PATCH [Suspect]
     Active Substance: RIVASTIGMINE
     Indication: MEMORY IMPAIRMENT
     Dosage: 9.5 MG, PATCH 10 (CM2), QD
     Route: 062
  3. EXELON PATCH [Suspect]
     Active Substance: RIVASTIGMINE
     Dosage: 13.3 MG, PATCH 15 (CM2) QD
     Route: 062
     Dates: end: 2015

REACTIONS (8)
  - Product adhesion issue [Unknown]
  - Choking [Unknown]
  - Dysphagia [Unknown]
  - Inappropriate schedule of drug administration [Unknown]
  - Unresponsive to stimuli [Unknown]
  - Drug ineffective [Unknown]
  - Speech disorder [Unknown]
  - Slow response to stimuli [Unknown]

NARRATIVE: CASE EVENT DATE: 2015
